FAERS Safety Report 8033250-6 (Version None)
Quarter: 2012Q1

REPORT INFORMATION
  Report Type: 
  Country: None (occurrence: None)
  Receive Date: 20120110
  Receipt Date: 20111228
  Transmission Date: 20120608
  Serious: Yes (Hospitalization)
  Sender: FDA-Public Use
  Company Number: US-UCBSA-043276

PATIENT
  Age: 52 Year
  Sex: Male
  Weight: 118 kg

DRUGS (13)
  1. CIMZIA [Suspect]
     Route: 058
     Dates: start: 20100609, end: 20100915
  2. PREDNISONE TAB [Concomitant]
     Dosage: DAILY DOSE: 10 MG
     Route: 048
     Dates: start: 20080201, end: 20111004
  3. ACETAMINOPHEN [Concomitant]
     Indication: CROHN'S DISEASE
  4. CALCIUM ACETATE [Concomitant]
  5. GLARGINE [Concomitant]
     Dosage: 10 UNITS EVERY DAY
  6. PREDNISONE TAB [Concomitant]
     Indication: CROHN'S DISEASE
     Dosage: 5MG DAILY
     Dates: start: 20111001
  7. CALCIUM CARBONATE [Concomitant]
  8. PREDNISONE TAB [Concomitant]
     Dosage: 60 MG
     Route: 048
     Dates: start: 20110101, end: 20110101
  9. GLARGINE [Concomitant]
     Dosage: 12 UNITS EVERY DAY
  10. POTASSIUM CHLORIDE [Concomitant]
     Route: 048
  11. CIMZIA [Suspect]
     Indication: CROHN'S DISEASE
     Route: 058
     Dates: start: 20110111, end: 20110924
  12. CIMZIA [Suspect]
     Route: 058
     Dates: start: 20100428, end: 20100526
  13. CALCIUM OXALATE [Concomitant]
     Indication: HYPERPHOSPHATAEMIA

REACTIONS (1)
  - SEPSIS [None]
